FAERS Safety Report 9003331 (Version 1)
Quarter: 2013Q1

REPORT INFORMATION
  Report Type: Spontaneous
  Country: US (occurrence: US)
  Receive Date: 20130108
  Receipt Date: 20130108
  Transmission Date: 20140127
  Serious: No
  Sender: FDA-Public Use
  Company Number: US-ASTRAZENECA-2013SE00358

PATIENT
  Age: 54 Year
  Sex: Female

DRUGS (2)
  1. PRILOSEC [Suspect]
     Indication: HYPERCHLORHYDRIA
     Route: 048
  2. PRILOSEC OTC [Suspect]
     Indication: HYPERCHLORHYDRIA
     Route: 048

REACTIONS (8)
  - Polyarthritis [Unknown]
  - Fatigue [Unknown]
  - Sensation of foreign body [Unknown]
  - Choking [Unknown]
  - Musculoskeletal stiffness [Unknown]
  - Hot flush [Unknown]
  - Chills [Unknown]
  - Arthralgia [Unknown]
